APPROVED DRUG PRODUCT: AXIRON
Active Ingredient: TESTOSTERONE
Strength: 30MG/1.5ML ACTUATION **Federal Register determination that product was not discontinued or withdrawn for safety or effectiveness reasons**
Dosage Form/Route: SOLUTION, METERED;TRANSDERMAL
Application: N022504 | Product #001
Applicant: ELI LILLY AND CO
Approved: Nov 23, 2010 | RLD: Yes | RS: No | Type: DISCN

PATENTS:
Patent 8435944 | Expires: Sep 27, 2027
Patent 9180194 | Expires: Jun 2, 2026
Patent 8807861 | Expires: Feb 26, 2027
Patent 8993520 | Expires: Jun 2, 2026
Patent 9289586 | Expires: Feb 26, 2027
Patent 8419307 | Expires: Feb 26, 2027